FAERS Safety Report 5743506-5 (Version None)
Quarter: 2008Q2

REPORT INFORMATION
  Report Type: 
  Country: None (occurrence: None)
  Receive Date: 20080520
  Receipt Date: 20080514
  Transmission Date: 20081010
  Serious: Yes (Other)
  Sender: FDA-Public Use
  Company Number: NL-JNJFOC-20080503000

PATIENT
  Age: 5 Decade
  Sex: Female

DRUGS (1)
  1. CONCERTA [Suspect]
     Indication: ATTENTION DEFICIT/HYPERACTIVITY DISORDER

REACTIONS (4)
  - BLOOD PRESSURE INCREASED [None]
  - FEELING HOT [None]
  - PERIPHERAL COLDNESS [None]
  - RENAL IMPAIRMENT [None]
